FAERS Safety Report 4778669-1 (Version None)
Quarter: 2005Q3

REPORT INFORMATION
  Report Type: 
  Country: None (occurrence: None)
  Receive Date: 20050926
  Receipt Date: 20050824
  Transmission Date: 20060218
  Serious: Yes (Death)
  Sender: FDA-Public Use
  Company Number: PHEH2005US09474

PATIENT
  Age: 5 Year
  Sex: Male

DRUGS (1)
  1. DEFEROXAMINE [Suspect]
     Indication: AUTISM
     Dosage: 3 TIMES

REACTIONS (1)
  - CARDIAC ARREST [None]
